FAERS Safety Report 15428677 (Version 1)
Quarter: 2018Q3

REPORT INFORMATION
  Report Type: Spontaneous
  Country: IN (occurrence: IN)
  Receive Date: 20180926
  Receipt Date: 20180926
  Transmission Date: 20181010
  Serious: Yes (Life-Threatening)
  Sender: FDA-Public Use
  Company Number: IN-FRESENIUS KABI-FK201810036

PATIENT
  Age: 23 Year
  Sex: Female

DRUGS (2)
  1. SODIUM BICARBONATE. [Concomitant]
     Active Substance: SODIUM BICARBONATE
     Indication: RENAL TUBULAR ACIDOSIS
     Route: 048
  2. FUROSEMIDE (MANUFACTURER UNKNOWN) [Suspect]
     Active Substance: FUROSEMIDE
     Indication: PROPHYLAXIS
     Route: 065

REACTIONS (2)
  - Quadriplegia [Recovered/Resolved]
  - Hypokalaemia [Recovered/Resolved]
